FAERS Safety Report 18758343 (Version 1)
Quarter: 2021Q1

REPORT INFORMATION
  Report Type: Spontaneous
  Country: DE (occurrence: DE)
  Receive Date: 20210119
  Receipt Date: 20210119
  Transmission Date: 20210419
  Serious: Yes (Other)
  Sender: FDA-Public Use
  Company Number: DE-BAYER-2021-022531

PATIENT
  Age: 30 Year
  Sex: Female
  Weight: 91 kg

DRUGS (1)
  1. KYLEENA [Suspect]
     Active Substance: LEVONORGESTREL
     Indication: CONTRACEPTION
     Dosage: 17.5 ?G PER DAY CONTINUOUSLY
     Route: 015
     Dates: start: 20201124, end: 20201228

REACTIONS (10)
  - Suppressed lactation [Unknown]
  - Suicidal ideation [Unknown]
  - Loss of libido [Unknown]
  - Depressed mood [Unknown]
  - Nausea [Unknown]
  - Anxiety [Unknown]
  - Genital haemorrhage [Unknown]
  - Periorbital swelling [Unknown]
  - Restlessness [Unknown]
  - Swelling face [Unknown]

NARRATIVE: CASE EVENT DATE: 20201127
